FAERS Safety Report 6982762-2 (Version None)
Quarter: 2010Q3

REPORT INFORMATION
  Report Type: 
  Country: None (occurrence: None)
  Receive Date: 20100914
  Receipt Date: 20100313
  Transmission Date: 20110219
  Serious: No
  Sender: FDA-Public Use
  Company Number: US-PFIZER INC-2010033681

PATIENT
  Sex: Female
  Weight: 88.435 kg

DRUGS (12)
  1. LYRICA [Suspect]
     Indication: FIBROMYALGIA
     Dosage: 50 MG, 3X/DAY
     Route: 048
     Dates: end: 20100311
  2. GABAPENTIN [Concomitant]
     Dosage: 300 MG THREE CAPSULE IN MORNING, FOUR CAPSULE IN NIGHT
  3. NORCO [Concomitant]
     Dosage: 10 MG/325 MG, 4X/DAY
  4. OXYBUTYNIN [Concomitant]
     Dosage: 10 MG, 2X/DAY
  5. FOLIC ACID [Concomitant]
     Dosage: 1 MG, DAILY
  6. DICYCLOMINE [Concomitant]
     Dosage: 20 MG, 3X/DAY
  7. ALLEGRA [Concomitant]
     Dosage: 180 MG, DAILY
  8. XANAX [Concomitant]
     Dosage: 0.25 MG, AS NEEDED
  9. TOPAMAX [Concomitant]
     Dosage: 25 MG  IN THE MORNING AND 50 MG IN THE EVENING
  10. PROTONIX [Concomitant]
     Dosage: 40 MG, DAILY
  11. SYNTHROID [Concomitant]
     Dosage: 75 MCG, DAILY
  12. WARFARIN [Concomitant]
     Indication: ANTICOAGULANT THERAPY
     Dosage: 12 MG, DAILY

REACTIONS (2)
  - GLOSSITIS [None]
  - GLOSSODYNIA [None]
